FAERS Safety Report 8146129-6 (Version None)
Quarter: 2012Q1

REPORT INFORMATION
  Report Type: 
  Country: None (occurrence: None)
  Receive Date: 20120217
  Receipt Date: 20110318
  Transmission Date: 20120608
  Serious: No
  Sender: FDA-Public Use
  Company Number: US-ABBOTT-11P-163-0712934-00

PATIENT
  Sex: Female
  Weight: 57.658 kg

DRUGS (4)
  1. SIMCOR [Suspect]
     Indication: BLOOD CHOLESTEROL
     Dosage: 500/20 MG DAILY
     Dates: start: 20110101
  2. BENICAR [Concomitant]
     Indication: HYPERTENSION
  3. ASPIRIN [Concomitant]
     Indication: PRODUCT USED FOR UNKNOWN INDICATION
  4. NORVASC [Concomitant]
     Indication: HYPERTENSION

REACTIONS (4)
  - PRURITUS [None]
  - SKIN WARM [None]
  - ERYTHEMA [None]
  - HEART RATE INCREASED [None]
